FAERS Safety Report 24072428 (Version 12)
Quarter: 2025Q3

REPORT INFORMATION
  Report Type: Report from Study
  Country: CO (occurrence: CO)
  Receive Date: 20240710
  Receipt Date: 20250715
  Transmission Date: 20251020
  Serious: Yes (Hospitalization, Other)
  Sender: AMGEN
  Company Number: CO-AMGEN-COLSL2024133092

PATIENT
  Age: 60 Year
  Sex: Female

DRUGS (9)
  1. VECTIBIX [Suspect]
     Active Substance: PANITUMUMAB
     Indication: Colorectal cancer metastatic
     Dosage: 250 MILLIGRAM, Q2WK
     Route: 042
     Dates: start: 20240621
  2. VECTIBIX [Suspect]
     Active Substance: PANITUMUMAB
     Dosage: 260 MILLIGRAM, Q2WK
     Route: 040
     Dates: start: 2024
  3. VECTIBIX [Suspect]
     Active Substance: PANITUMUMAB
     Dosage: 270 MILLIGRAM, Q2WK
     Route: 040
     Dates: end: 20250425
  4. LYMECYCLINE [Concomitant]
     Active Substance: LYMECYCLINE
     Indication: Rash
     Route: 061
     Dates: start: 20250415
  5. LYMECYCLINE [Concomitant]
     Active Substance: LYMECYCLINE
     Indication: Oral disorder
  6. LYMECYCLINE [Concomitant]
     Active Substance: LYMECYCLINE
     Indication: Papule
  7. LYMECYCLINE [Concomitant]
     Active Substance: LYMECYCLINE
     Indication: Erythema
  8. LYMECYCLINE [Concomitant]
     Active Substance: LYMECYCLINE
     Indication: Pruritus
  9. LYMECYCLINE [Concomitant]
     Active Substance: LYMECYCLINE
     Indication: Pustule

REACTIONS (21)
  - Skin burning sensation [Not Recovered/Not Resolved]
  - Pain of skin [Not Recovered/Not Resolved]
  - Oedema peripheral [Not Recovered/Not Resolved]
  - Abdominal pain [Not Recovered/Not Resolved]
  - Vomiting [Recovering/Resolving]
  - Rash [Not Recovered/Not Resolved]
  - Cholecystitis infective [Recovering/Resolving]
  - Nosocomial infection [Recovering/Resolving]
  - Wound infection [Recovering/Resolving]
  - Wound secretion [Recovering/Resolving]
  - Colorectal cancer metastatic [Not Recovered/Not Resolved]
  - Conjunctival hyperaemia [Not Recovered/Not Resolved]
  - Skin injury [Not Recovered/Not Resolved]
  - Pustule [Not Recovered/Not Resolved]
  - Oral disorder [Not Recovered/Not Resolved]
  - Papule [Not Recovered/Not Resolved]
  - Dry eye [Not Recovered/Not Resolved]
  - Drug eruption [Not Recovered/Not Resolved]
  - Erythema [Not Recovered/Not Resolved]
  - Pruritus [Not Recovered/Not Resolved]
  - Drug hypersensitivity [Not Recovered/Not Resolved]

NARRATIVE: CASE EVENT DATE: 20240101
